FAERS Safety Report 4475913-5 (Version None)
Quarter: 2004Q4

REPORT INFORMATION
  Report Type: 
  Country: None (occurrence: None)
  Receive Date: 20041012
  Receipt Date: 20040907
  Transmission Date: 20050328
  Serious: Yes (Other)
  Sender: FDA-Public Use
  Company Number: 2004074268

PATIENT
  Age: 86 Year
  Sex: Male

DRUGS (8)
  1. SULPERAZON (CEFOPERAZONE, SULBACTAM) [Suspect]
     Indication: INFECTION PROPHYLAXIS
     Dosage: 2 GRAM (1 GRAM, 2 IN 1 D), INTRAVENOUS
     Route: 042
     Dates: start: 20040825, end: 20040901
  2. MINOCYCLINE HYDROCHLORIDE [Concomitant]
  3. IMMUNE GLOBULIN INTRAVENOUS (HUMAN) [Concomitant]
  4. ALBUMIN (HUMAN) [Concomitant]
  5. UNICALIQ L (AMINO ACIDS NOS, CARBOHYDRATES NOS, ELECTROLYTES NOS) [Concomitant]
  6. MULTIVITAMINS (ASCORBIC ACID, ERGOCALCIFEROL, FOLIC ACID, NICOTINAMIDE [Concomitant]
  7. MINERAL TAB [Concomitant]
  8. RED BLOOD CELLS [Concomitant]

REACTIONS (2)
  - PROTHROMBIN TIME PROLONGED [None]
  - URETHRAL HAEMORRHAGE [None]
